FAERS Safety Report 16438507 (Version 1)
Quarter: 2019Q2

REPORT INFORMATION
  Report Type: Spontaneous
  Country: SE (occurrence: SE)
  Receive Date: 20190617
  Receipt Date: 20190617
  Transmission Date: 20190711
  Serious: Yes (Hospitalization, Other)
  Sender: FDA-Public Use
  Company Number: SE-LUPIN PHARMACEUTICALS INC.-2019-03659

PATIENT
  Age: 81 Year
  Sex: Male

DRUGS (1)
  1. AMLODIPINE [Suspect]
     Active Substance: AMLODIPINE BESYLATE
     Indication: PRODUCT USED FOR UNKNOWN INDICATION
     Dosage: 0.5-1 GRAM
     Route: 048

REACTIONS (2)
  - Toxicity to various agents [Recovered/Resolved]
  - Haemodynamic instability [Recovered/Resolved]
